FAERS Safety Report 6261227-X (Version None)
Quarter: 2009Q3

REPORT INFORMATION
  Report Type: 
  Country: None (occurrence: None)
  Receive Date: 20090709
  Receipt Date: 20090626
  Transmission Date: 20100115
  Serious: Yes (Other)
  Sender: FDA-Public Use
  Company Number: JP-PFIZER INC-2009227576

PATIENT
  Age: 24 Year

DRUGS (2)
  1. CHAMPIX [Suspect]
     Dosage: UNK
     Dates: start: 20090415, end: 20090609
  2. PRAMIEL [Concomitant]
     Dates: start: 20090429, end: 20090608

REACTIONS (3)
  - INTENTIONAL OVERDOSE [None]
  - SUICIDAL BEHAVIOUR [None]
  - SUICIDAL IDEATION [None]
